FAERS Safety Report 16803757 (Version 1)
Quarter: 2019Q3

REPORT INFORMATION
  Report Type: Spontaneous
  Country: US (occurrence: US)
  Receive Date: 20190913
  Receipt Date: 20190913
  Transmission Date: 20191005
  Serious: Yes (Hospitalization, Other)
  Sender: FDA-Public Use
  Company Number: US-CIPLA LTD.-2019US06275

PATIENT

DRUGS (1)
  1. WARFARIN [Suspect]
     Active Substance: WARFARIN
     Indication: ANTICOAGULANT THERAPY
     Dosage: UNK
     Route: 065

REACTIONS (7)
  - Retroperitoneal haematoma [Unknown]
  - Mental status changes [Unknown]
  - Shock [Unknown]
  - Aphasia [Unknown]
  - Respiratory failure [Unknown]
  - Anaemia [Unknown]
  - Muscular weakness [Unknown]
